FAERS Safety Report 8922311 (Version 1)
Quarter: 2012Q4

REPORT INFORMATION
  Report Type: 
  Country: JP (occurrence: JP)
  Receive Date: 20121123
  Receipt Date: 20121123
  Transmission Date: 20130627
  Serious: Yes (Hospitalization)
  Sender: FDA-Public Use
  Company Number: JP-BAYER-2012-119646

PATIENT
  Age: 81 Year
  Sex: Male

DRUGS (2)
  1. BAYASPIRIN [Suspect]
     Indication: ANGINA PECTORIS
     Route: 048
  2. WARFARIN [Suspect]
     Route: 048

REACTIONS (3)
  - Mesenteric abscess [None]
  - Diverticular perforation [None]
  - Haemorrhage [None]
